FAERS Safety Report 4351163-8 (Version None)
Quarter: 2004Q2

REPORT INFORMATION
  Report Type: 
  Country: None (occurrence: None)
  Receive Date: 20040428
  Receipt Date: 20040202
  Transmission Date: 20050107
  Serious: Yes (Other)
  Sender: FDA-Public Use
  Company Number: US-JNJFOC-20040200862

PATIENT
  Sex: Female
  Weight: 50.8029 kg

DRUGS (1)
  1. ULTRAM [Suspect]
     Indication: PAIN
     Dosage: ORAL
     Route: 048

REACTIONS (4)
  - BACK PAIN [None]
  - DEPRESSION [None]
  - MUSCLE SPASMS [None]
  - SUICIDAL IDEATION [None]
